FAERS Safety Report 4510188-X (Version None)
Quarter: 2004Q4

REPORT INFORMATION
  Report Type: 
  Country: None (occurrence: None)
  Receive Date: 20041124
  Receipt Date: 20041118
  Transmission Date: 20050328
  Serious: Yes (Life-Threatening)
  Sender: FDA-Public Use
  Company Number: IT-MERCK-0411USA03095

PATIENT
  Sex: Male

DRUGS (5)
  1. PRINIVIL [Suspect]
     Indication: ESSENTIAL HYPERTENSION
     Route: 048
     Dates: start: 20041002, end: 20041002
  2. MODURETIC 5-50 [Concomitant]
     Route: 065
  3. OMNIC [Concomitant]
     Route: 065
  4. DILATREND [Concomitant]
     Route: 065
     Dates: end: 20041001
  5. DILATREND [Concomitant]
     Route: 065
     Dates: start: 20041006

REACTIONS (1)
  - ANAPHYLACTIC SHOCK [None]
